FAERS Safety Report 9568038 (Version 1)
Quarter: 2013Q3

REPORT INFORMATION
  Report Type: Spontaneous
  Country: US (occurrence: US)
  Receive Date: 20130930
  Receipt Date: 20130930
  Transmission Date: 20140515
  Serious: No
  Sender: FDA-Public Use
  Company Number: US-AMGEN-USASP2013057771

PATIENT
  Age: 62 Year
  Sex: Female
  Weight: 54.42 kg

DRUGS (12)
  1. ENBREL [Suspect]
     Indication: PRODUCT USED FOR UNKNOWN INDICATION
     Dosage: 50 MG, QWK
     Route: 065
  2. SYSTANE [Concomitant]
     Dosage: UNK
  3. LORAZEPAM [Concomitant]
     Dosage: 0.5 MG, UNK
  4. OMEPRAZOLE [Concomitant]
     Dosage: 20 MG, UNK
  5. DICYCLOMINE                        /00068601/ [Concomitant]
     Dosage: 10 MG, UNK
  6. IMITREX                            /01044801/ [Concomitant]
     Dosage: 50 MG, UNK
  7. ANACIN                             /00141001/ [Concomitant]
     Dosage: 400-32 MG
  8. CALCIUM +D3 [Concomitant]
     Dosage: 600 MG, UNK
  9. FISH OIL [Concomitant]
     Dosage: 1200 MG, UNK
  10. ALREX                              /00595201/ [Concomitant]
     Dosage: UNK
  11. AZASITE [Concomitant]
     Dosage: UNK
  12. VITAMIN D3 [Concomitant]
     Dosage: 1000 UNIT, UNK

REACTIONS (1)
  - Injection site pain [Unknown]
